FAERS Safety Report 21191382 (Version 2)
Quarter: 2022Q3

REPORT INFORMATION
  Report Type: Spontaneous
  Country: US (occurrence: US)
  Receive Date: 20220809
  Receipt Date: 20220812
  Transmission Date: 20221027
  Serious: No
  Sender: FDA-Public Use
  Company Number: US-PFIZER INC-PV202200038736

PATIENT
  Age: 4 Decade
  Sex: Female

DRUGS (1)
  1. NIFEDIPINE [Suspect]
     Active Substance: NIFEDIPINE
     Indication: Blood pressure measurement
     Dosage: UNK

REACTIONS (11)
  - Maternal exposure during pregnancy [Unknown]
  - Flushing [Unknown]
  - Body temperature increased [Unknown]
  - Photosensitivity reaction [Unknown]
  - Erythema [Unknown]
  - Swelling [Unknown]
  - Tremor [Unknown]
  - Dyspnoea [Unknown]
  - Urine analysis abnormal [Unknown]
  - Nausea [Unknown]
  - Fatigue [Unknown]
